FAERS Safety Report 6568341-X (Version None)
Quarter: 2010Q1

REPORT INFORMATION
  Report Type: 
  Country: None (occurrence: None)
  Receive Date: 20100128
  Receipt Date: 20100115
  Transmission Date: 20100710
  Serious: Yes (Other)
  Sender: FDA-Public Use
  Company Number: 003326

PATIENT
  Age: 63 Year
  Sex: Female
  Weight: 38 kg

DRUGS (1)
  1. PREDNISOLONE [Suspect]
     Indication: SARCOIDOSIS
     Dosage: 30 MG QD ORAL
     Route: 048

REACTIONS (7)
  - DECREASED APPETITE [None]
  - DRUG INEFFECTIVE [None]
  - GASTRIC ULCER [None]
  - NO THERAPEUTIC RESPONSE [None]
  - NON-HODGKIN'S LYMPHOMA STAGE IV [None]
  - PLEURAL EFFUSION [None]
  - TONGUE ULCERATION [None]
